FAERS Safety Report 6463001-8 (Version None)
Quarter: 2009Q4

REPORT INFORMATION
  Report Type: 
  Country: None (occurrence: None)
  Receive Date: 20091130
  Receipt Date: 20091029
  Transmission Date: 20100525
  Serious: No
  Sender: FDA-Public Use
  Company Number: US-AMGEN-KDL371986

PATIENT
  Sex: Female

DRUGS (2)
  1. ENBREL [Suspect]
     Indication: PSORIATIC ARTHROPATHY
     Route: 058
     Dates: start: 20090304
  2. ENBREL [Suspect]
     Indication: PSORIASIS

REACTIONS (4)
  - ALOPECIA [None]
  - ARTHRALGIA [None]
  - JOINT STIFFNESS [None]
  - OEDEMA PERIPHERAL [None]
